FAERS Safety Report 6095264-5 (Version None)
Quarter: 2009Q1

REPORT INFORMATION
  Report Type: 
  Country: None (occurrence: None)
  Receive Date: 20090227
  Receipt Date: 20080303
  Transmission Date: 20090719
  Serious: No
  Sender: FDA-Public Use
  Company Number: A0711370A

PATIENT
  Sex: Female

DRUGS (4)
  1. LAMICTAL [Suspect]
     Indication: BIPOLAR DISORDER
     Route: 048
  2. NALTREXONE [Suspect]
     Route: 030
  3. MULTIPLE MEDICATIONS [Concomitant]
  4. INJECTION [Concomitant]
     Indication: ALCOHOLISM
     Route: 065

REACTIONS (1)
  - RASH [None]
